FAERS Safety Report 11245782 (Version 1)
Quarter: 2015Q3

REPORT INFORMATION
  Report Type: Spontaneous
  Country: DE (occurrence: DE)
  Receive Date: 20150707
  Receipt Date: 20150707
  Transmission Date: 20151125
  Serious: Yes (Hospitalization, Disabling, Other)
  Sender: FDA-Public Use
  Company Number: DE-AMGEN-DEUSP2015044364

PATIENT
  Age: 49 Year
  Sex: Female
  Weight: 69 kg

DRUGS (1)
  1. ENBREL [Suspect]
     Active Substance: ETANERCEPT
     Indication: PRODUCT USED FOR UNKNOWN INDICATION
     Dosage: 50 MG, WEEKLY
     Route: 058
     Dates: start: 201408, end: 201504

REACTIONS (6)
  - Multiple sclerosis [Not Recovered/Not Resolved]
  - Diplopia [Unknown]
  - Vestibular disorder [Unknown]
  - Central nervous system inflammation [Not Recovered/Not Resolved]
  - VIth nerve paralysis [Unknown]
  - Strabismus [Unknown]

NARRATIVE: CASE EVENT DATE: 20150327
